FAERS Safety Report 10065337 (Version 1)
Quarter: 2014Q2

REPORT INFORMATION
  Report Type: Spontaneous
  Country: US (occurrence: None)
  Receive Date: 20140407
  Receipt Date: 20140407
  Transmission Date: 20141212
  Serious: Yes (Other)
  Sender: FDA-Public Use
  Company Number: None

PATIENT
  Age: 27 Year
  Sex: Female
  Weight: 83 kg

DRUGS (1)
  1. ACETAZOLAMIDE [Suspect]
     Indication: INTRACRANIAL PRESSURE INCREASED
     Route: 048
     Dates: start: 201008, end: 201009

REACTIONS (2)
  - Abdominal discomfort [None]
  - Product substitution issue [None]
